FAERS Safety Report 5662487-6 (Version None)
Quarter: 2008Q1

REPORT INFORMATION
  Report Type: 
  Country: None (occurrence: None)
  Receive Date: 20080313
  Receipt Date: 20080307
  Transmission Date: 20080703
  Serious: Yes (Hospitalization, Other)
  Sender: FDA-Public Use
  Company Number: PHHY2008JP02302

PATIENT
  Age: 60 Year
  Sex: Female

DRUGS (2)
  1. PREDNISOLONE [Concomitant]
     Dosage: 12.5 MG/DAY
     Route: 048
  2. DICLOFENAC SODIUM [Suspect]
     Indication: RHEUMATOID ARTHRITIS
     Dosage: 25 MG/DAY
     Route: 048

REACTIONS (9)
  - ABDOMINAL PAIN [None]
  - ANAEMIA [None]
  - COLECTOMY [None]
  - DIARRHOEA [None]
  - ENDOSCOPY ABNORMAL [None]
  - HAEMATOCHEZIA [None]
  - HAEMOGLOBIN DECREASED [None]
  - INTESTINAL ULCER [None]
  - LARGE INTESTINAL STRICTURE [None]
